FAERS Safety Report 8097592-0 (Version None)
Quarter: 2012Q1

REPORT INFORMATION
  Report Type: 
  Country: None (occurrence: None)
  Receive Date: 20120128
  Receipt Date: 20110620
  Transmission Date: 20120608
  Serious: No
  Sender: FDA-Public Use
  Company Number: US-ABBOTT-11P-163-0733868-00

PATIENT
  Sex: Female
  Weight: 70.37 kg

DRUGS (12)
  1. HUMIRA [Suspect]
     Indication: CROHN'S DISEASE
     Dosage: 160MG ON DAY ONE
     Route: 058
     Dates: start: 20110618, end: 20110618
  2. SYNTHROID [Concomitant]
     Indication: AUTOIMMUNE THYROIDITIS
     Route: 048
  3. PREDNISONE TAB [Concomitant]
     Indication: CROHN'S DISEASE
     Dosage: 8 TABLETS PER DAY
     Route: 048
  4. ASACOL [Concomitant]
     Indication: CROHN'S DISEASE
     Route: 048
  5. VITAMIN D [Concomitant]
     Indication: VITAMIN SUPPLEMENTATION
  6. FOLIC ACID [Concomitant]
     Indication: VITAMIN SUPPLEMENTATION
     Route: 048
  7. SUCRALFATE [Concomitant]
     Indication: ABDOMINAL PAIN UPPER
     Dosage: BEFORE MEALS
  8. METHOTREXATE [Concomitant]
     Indication: CROHN'S DISEASE
     Route: 058
     Dates: start: 20110601
  9. ONDANSETRON [Concomitant]
     Indication: NAUSEA
     Dosage: EVERY 6 HOURS AS NEEDED
     Route: 048
  10. ONDANSETRON [Concomitant]
     Indication: VOMITING
  11. PREVACID [Concomitant]
     Indication: ABDOMINAL PAIN UPPER
     Route: 048
  12. HYDROMORPHONE HCL [Concomitant]
     Indication: PAIN
     Route: 048

REACTIONS (1)
  - INJECTION SITE PAIN [None]
